FAERS Safety Report 7519344-X (Version None)
Quarter: 2011Q2

REPORT INFORMATION
  Report Type: 
  Country: None (occurrence: None)
  Receive Date: 20110602
  Receipt Date: 20110520
  Transmission Date: 20111010
  Serious: Yes (Hospitalization)
  Sender: FDA-Public Use
  Company Number: DE-CELGENEUS-062-21880-11033414

PATIENT
  Age: 64 Year
  Sex: Male
  Weight: 95 kg

DRUGS (5)
  1. REVLIMID [Suspect]
     Indication: MULTIPLE MYELOMA
     Dosage: 5 MILLIGRAM
     Route: 048
     Dates: start: 20100127
  2. DEXAMETHASONE [Suspect]
     Indication: MULTIPLE MYELOMA
     Route: 048
     Dates: start: 20100127
  3. PIOGLITAZONE [Suspect]
     Indication: MULTIPLE MYELOMA
     Dosage: 60 MILLIGRAM
     Route: 048
     Dates: start: 20100127
  4. DEXAMETHASONE [Suspect]
     Route: 048
     Dates: start: 20100127
  5. TREOSULFAN [Suspect]
     Indication: MULTIPLE MYELOMA
     Dosage: 250 MILLIGRAM
     Route: 048
     Dates: start: 20100127

REACTIONS (1)
  - TOOTH EXTRACTION [None]
